FAERS Safety Report 10359260 (Version 1)
Quarter: 2014Q3

REPORT INFORMATION
  Report Type: Spontaneous
  Country: US (occurrence: None)
  Receive Date: 20140731
  Receipt Date: 20140731
  Transmission Date: 20150326
  Serious: No
  Sender: FDA-Public Use
  Company Number: None

PATIENT
  Age: 33 Year
  Sex: Female
  Weight: 195 kg

DRUGS (1)
  1. BUTRANS [Suspect]
     Active Substance: BUPRENORPHINE
     Indication: POST LAMINECTOMY SYNDROME
     Dosage: 1 PATCH, APPLIED TO A SURFACE, USUALLY THE SKIN
     Route: 061
     Dates: start: 201206, end: 201302

REACTIONS (7)
  - Impaired healing [None]
  - Pain [None]
  - Application site vesicles [None]
  - Application site erythema [None]
  - Device leakage [None]
  - Device adhesion issue [None]
  - Application site pruritus [None]

NARRATIVE: CASE EVENT DATE: 20140204
